FAERS Safety Report 6533515-0 (Version None)
Quarter: 2010Q1

REPORT INFORMATION
  Report Type: 
  Country: None (occurrence: None)
  Receive Date: 20100111
  Receipt Date: 20100104
  Transmission Date: 20100710
  Serious: Yes (Other)
  Sender: FDA-Public Use
  Company Number: US-PFIZER INC-2009300922

PATIENT
  Sex: Female
  Weight: 101.59 kg

DRUGS (21)
  1. CHANTIX [Suspect]
     Indication: SMOKING CESSATION THERAPY
     Dosage: 0.5 MG, 1X/DAY
     Route: 048
     Dates: start: 20091016, end: 20091124
  2. CHANTIX [Suspect]
     Indication: TOBACCO ABUSE
  3. LEXAPRO [Concomitant]
     Indication: DEPRESSION
     Dosage: 10 MG, 1X/DAY
     Route: 048
  4. LEXAPRO [Concomitant]
     Dosage: 20 MG, 1X/DAY
  5. LEXAPRO [Concomitant]
  6. TRAZODONE [Concomitant]
     Indication: INSOMNIA
     Dosage: 300 MG, 1X/DAY
     Route: 048
  7. VERAPAMIL [Concomitant]
     Indication: MIGRAINE PROPHYLAXIS
     Dosage: 240 MG, 1X/DAY
     Route: 048
  8. MAXALT [Concomitant]
     Indication: MIGRAINE
     Dosage: 10 MG, UNK
     Route: 048
  9. KLONOPIN [Concomitant]
     Indication: MIGRAINE
     Dosage: FREQUENCY: 2X/DAY,
  10. KLONOPIN [Concomitant]
     Dosage: FREQUENCY: AS NEEDED,
     Route: 048
  11. KLONOPIN [Concomitant]
     Dosage: UNK
  12. PROMETHAZINE HYDROCHLORIDE [Concomitant]
     Indication: NAUSEA
     Dosage: 25 MG, 2X/DAY
  13. CARISOPRODOL [Concomitant]
     Indication: MUSCLE SPASMS
     Dosage: 350 MG, 4X/DAY
     Route: 048
  14. CARISOPRODOL [Concomitant]
     Indication: MUSCLE TIGHTNESS
  15. NORCO [Concomitant]
     Indication: PAIN
     Dosage: 7.5/325 MG, 2X/DAY
     Route: 048
  16. NORCO [Concomitant]
     Dosage: FREQUENCY: 2X/DAY AS NEEDED,
  17. NORCO [Concomitant]
     Dosage: FREQUENCY: 2X/DAY AS NEEDED,
  18. SYNTHROID [Concomitant]
     Indication: THYROID DISORDER
     Dosage: 100 UG, 1X/DAY
  19. ZYRTEC [Concomitant]
     Indication: HYPERSENSITIVITY
     Dosage: 10 MG, UNK
     Route: 048
  20. CALAN - SLOW RELEASE [Concomitant]
     Dosage: 240 MG, 1X/DAY
  21. CALAN - SLOW RELEASE [Concomitant]

REACTIONS (3)
  - EYE SWELLING [None]
  - HYPERSENSITIVITY [None]
  - SWELLING FACE [None]
